FAERS Safety Report 5356351-X (Version None)
Quarter: 2007Q2

REPORT INFORMATION
  Report Type: 
  Country: None (occurrence: None)
  Receive Date: 20070613
  Receipt Date: 20070605
  Transmission Date: 20071010
  Serious: Yes (Other)
  Sender: FDA-Public Use
  Company Number: US-PFIZER INC-2007046134

PATIENT
  Age: 92 Year
  Sex: Male

DRUGS (1)
  1. PREDNISONE TAB [Suspect]
     Indication: TEMPORAL ARTERITIS
     Dosage: DAILY DOSE:60MG
     Route: 048

REACTIONS (10)
  - HERPES ZOSTER [None]
  - IMPAIRED HEALING [None]
  - MALIGNANT MELANOMA [None]
  - NEOPLASM MALIGNANT [None]
  - NEUROENDOCRINE CARCINOMA OF THE SKIN [None]
  - NEUROPATHY PERIPHERAL [None]
  - PARAESTHESIA [None]
  - POST HERPETIC NEURALGIA [None]
  - SKIN ATROPHY [None]
  - SKIN ULCER [None]
